FAERS Safety Report 8006500-X (Version None)
Quarter: 2011Q4

REPORT INFORMATION
  Report Type: 
  Country: None (occurrence: None)
  Receive Date: 20111226
  Receipt Date: 20111223
  Transmission Date: 20120403
  Serious: Yes (Death, Other)
  Sender: FDA-Public Use
  Company Number: PHHY2011NL90337

PATIENT
  Sex: Female
  Weight: 46 kg

DRUGS (12)
  1. SPIRONOLACTONE [Concomitant]
     Indication: CARDIAC FAILURE
     Dosage: 25 MG/DAY
  2. SIMVASTATIN [Concomitant]
  3. METOPROLOL SUCCINATE [Concomitant]
     Dosage: 200 MG/DAY
  4. TOLBUTAMIDE [Concomitant]
     Indication: DIABETES MELLITUS
     Dosage: 50 MG/DAY
  5. ATENOLOL [Concomitant]
     Indication: ABDOMINAL DISCOMFORT
     Dosage: 100 MG/DAY
  6. ALISKIREN [Suspect]
     Indication: HYPERTENSION
     Dosage: 150 MG, UNK
     Route: 048
     Dates: start: 20090312, end: 20090601
  7. CALCITRIOL [Concomitant]
     Indication: OSTEOPOROSIS
     Dosage: 500 MG, QD
  8. ENALAPRIL MALEATE [Concomitant]
     Indication: HYPERTENSION
     Dosage: 20 MG, BID
     Dates: start: 20090101
  9. METFORMIN HCL [Concomitant]
     Indication: DIABETES MELLITUS
     Dosage: 500 MG, BID
  10. FUROSEMIDE [Concomitant]
     Indication: CARDIAC FAILURE
     Dosage: 40 MG/DAY
  11. DIAZEPAM [Concomitant]
     Indication: DIZZINESS
     Dosage: 5 MG, BID
  12. ESOMEPRAZOLE [Concomitant]
     Dosage: 20 MG/DAY

REACTIONS (10)
  - DEHYDRATION [None]
  - C-REACTIVE PROTEIN INCREASED [None]
  - DEATH [None]
  - BLADDER CANCER [None]
  - RENAL FAILURE [None]
  - BLOOD URINE PRESENT [None]
  - INFECTION [None]
  - BLOOD CREATININE INCREASED [None]
  - BLOOD GLUCOSE INCREASED [None]
  - LETHARGY [None]
